FAERS Safety Report 13949141 (Version 1)
Quarter: 2017Q3

REPORT INFORMATION
  Report Type: Spontaneous
  Country: AU (occurrence: AU)
  Receive Date: 20170908
  Receipt Date: 20170908
  Transmission Date: 20171128
  Serious: Yes (Other)
  Sender: FDA-Public Use
  Company Number: AU-GLAXOSMITHKLINE-AU2017GSK137926

PATIENT
  Sex: Male

DRUGS (2)
  1. DUODART [Suspect]
     Active Substance: DUTASTERIDE\TAMSULOSIN
     Indication: PRODUCT USED FOR UNKNOWN INDICATION
     Dosage: UNK
  2. AVODART [Suspect]
     Active Substance: DUTASTERIDE
     Indication: PRODUCT USED FOR UNKNOWN INDICATION
     Dosage: 0.5 ?G, 1D, MCG
     Dates: start: 20170904

REACTIONS (5)
  - Cystitis ulcerative [Unknown]
  - Urinary bladder haemorrhage [Unknown]
  - Prostatic disorder [Unknown]
  - Abnormal dreams [Unknown]
  - Therapy cessation [Unknown]
